FAERS Safety Report 19372257 (Version 1)
Quarter: 2021Q2

REPORT INFORMATION
  Report Type: Spontaneous
  Country: US (occurrence: US)
  Receive Date: 20210603
  Receipt Date: 20210603
  Transmission Date: 20210717
  Serious: Yes (Hospitalization)
  Sender: FDA-Public Use
  Company Number: None

PATIENT
  Age: 70 Year
  Sex: Female

DRUGS (11)
  1. DOFETILIDE. [Suspect]
     Active Substance: DOFETILIDE
     Indication: ESSENTIAL HYPERTENSION
     Route: 048
     Dates: start: 20180313
  2. ATORVASTATIN [Concomitant]
     Active Substance: ATORVASTATIN
  3. POTASSIUM CHLORIDE. [Concomitant]
     Active Substance: POTASSIUM CHLORIDE
  4. SERTRALINE [Concomitant]
     Active Substance: SERTRALINE HYDROCHLORIDE
  5. LEVOTHYROXINE. [Concomitant]
     Active Substance: LEVOTHYROXINE
  6. METOPROLOL. [Concomitant]
     Active Substance: METOPROLOL
  7. FUROSEMIDE. [Concomitant]
     Active Substance: FUROSEMIDE
  8. COLCHICINE. [Concomitant]
     Active Substance: COLCHICINE
  9. ELIQUIS [Concomitant]
     Active Substance: APIXABAN
  10. ALLOPURINOL. [Concomitant]
     Active Substance: ALLOPURINOL
  11. DOXAZOSIN [Concomitant]
     Active Substance: DOXAZOSIN MESYLATE

REACTIONS (1)
  - Cerebrovascular accident [None]
